FAERS Safety Report 10245941 (Version 1)
Quarter: 2014Q2

REPORT INFORMATION
  Report Type: Spontaneous
  Country: US (occurrence: None)
  Receive Date: 20140616
  Receipt Date: 20140616
  Transmission Date: 20141212
  Serious: No
  Sender: FDA-Public Use
  Company Number: None

PATIENT
  Age: 76 Year
  Sex: Female
  Weight: 63.5 kg

DRUGS (9)
  1. NAMENDA [Suspect]
     Indication: DEMENTIA ALZHEIMER^S TYPE
     Route: 048
     Dates: start: 20140529, end: 20140601
  2. FELODIPINE [Concomitant]
  3. TRIMETERENE/HCTZ [Concomitant]
  4. VITAMIN D3 [Concomitant]
  5. LIQUID CALCIUM [Concomitant]
  6. C [Concomitant]
  7. B COMPLEX [Concomitant]
  8. CENTRUM SILVER [Concomitant]
  9. VITAMIN E [Concomitant]

REACTIONS (3)
  - Headache [None]
  - Dry throat [None]
  - Burning sensation [None]
